FAERS Safety Report 12833577 (Version 1)
Quarter: 2016Q4

REPORT INFORMATION
  Report Type: Spontaneous
  Country: SI (occurrence: SI)
  Receive Date: 20161010
  Receipt Date: 20161010
  Transmission Date: 20170207
  Serious: Yes (Other)
  Sender: FDA-Public Use
  Company Number: SI-BAXTER-2016BAX051311

PATIENT
  Age: 51 Year
  Sex: Female

DRUGS (3)
  1. NATRIJEV KLORID BAXTER 9 MG/ML RAZTOPINA ZA INFUNDIRANJE, 1000ML, VIAF [Suspect]
     Active Substance: SODIUM CHLORIDE
     Indication: CARDIAC ARREST
  2. NATRIJEV KLORID BAXTER 9 MG/ML RAZTOPINA ZA INFUNDIRANJE, 1000ML, VIAF [Suspect]
     Active Substance: SODIUM CHLORIDE
     Indication: BODY TEMPERATURE INCREASED
     Route: 042
  3. NATRIJEV KLORID BAXTER 9 MG/ML RAZTOPINA ZA INFUNDIRANJE, 1000ML, VIAF [Suspect]
     Active Substance: SODIUM CHLORIDE
     Indication: OFF LABEL USE

REACTIONS (3)
  - Off label use [None]
  - Sinus bradycardia [None]
  - Pulmonary oedema [Unknown]
